FAERS Safety Report 23205269 (Version 2)
Quarter: 2024Q1

REPORT INFORMATION
  Report Type: Spontaneous
  Country: PR (occurrence: PR)
  Receive Date: 20231120
  Receipt Date: 20240108
  Transmission Date: 20240409
  Serious: No
  Sender: FDA-Public Use
  Company Number: PR-PFIZER INC-202300367087

PATIENT
  Age: 12 Year
  Sex: Male
  Weight: 34.02 kg

DRUGS (1)
  1. NGENLA [Suspect]
     Active Substance: SOMATROGON-GHLA
     Indication: Blood growth hormone
     Dosage: 22 MG

REACTIONS (3)
  - Product prescribing error [Unknown]
  - Injection site swelling [Unknown]
  - Injection site erythema [Unknown]
